FAERS Safety Report 24389983 (Version 1)
Quarter: 2024Q4

REPORT INFORMATION
  Report Type: Report from Study
  Country: JP (occurrence: JP)
  Receive Date: 20241003
  Receipt Date: 20241003
  Transmission Date: 20250115
  Serious: Yes (Death)
  Sender: SHIONOGI
  Company Number: JP-shionogi-202400000467

PATIENT
  Age: 8 Decade
  Sex: Female

DRUGS (1)
  1. CEFIDEROCOL [Suspect]
     Active Substance: CEFIDEROCOL
     Indication: Urinary tract infection
     Dosage: DRIP INFUSION OVER 3 HOURS
     Route: 041
     Dates: start: 20240905, end: 20240919

REACTIONS (1)
  - Acute myocardial infarction [Fatal]
